FAERS Safety Report 9300028 (Version 1)
Quarter: 2012Q4

REPORT INFORMATION
  Report Type: Spontaneous
  Country: GB (occurrence: None)
  Receive Date: 20121107
  Receipt Date: 20121107
  Transmission Date: 20130627
  Serious: Yes (Other)
  Sender: FDA-Public Use
  Company Number: GER/UKI/12/0025000

PATIENT
  Age: 4 Year
  Sex: Male
  Weight: 26.04 kg

DRUGS (2)
  1. CETIRIZINE (CETIRIZINE) [Suspect]
     Indication: HAY FEVER
     Route: 048
     Dates: start: 201206
  2. MELATONIN [Suspect]
     Indication: POOR SLEEP
     Route: 048
     Dates: start: 20120531

REACTIONS (4)
  - Somnolence [None]
  - Loss of consciousness [None]
  - Wrong drug administered [None]
  - Depressed level of consciousness [None]
